FAERS Safety Report 8462931-5 (Version None)
Quarter: 2012Q2

REPORT INFORMATION
  Report Type: 
  Country: None (occurrence: None)
  Receive Date: 20120323
  Receipt Date: 20111107
  Transmission Date: 20120825
  Serious: Yes (Hospitalization)
  Sender: FDA-Public Use
  Company Number: 163-21880-11110966

PATIENT
  Age: 67 Year
  Sex: Female

DRUGS (8)
  1. ENSURE (ENSURE) [Concomitant]
  2. BACTRIM DS [Concomitant]
  3. PRILOSEC [Concomitant]
  4. ACETAMINOPHEN [Concomitant]
  5. PREDNISONE TAB [Concomitant]
  6. CELEXA [Concomitant]
  7. LENALIDOMIDE [Suspect]
     Indication: MYELODYSPLASTIC SYNDROME
     Dosage: 5 MG, X 28 CAPS, PO
     Route: 048
     Dates: start: 20111024
  8. METFFORMIN HYDROCHLORIDE [Concomitant]

REACTIONS (2)
  - PYREXIA [None]
  - LOSS OF CONSCIOUSNESS [None]
